FAERS Safety Report 19983666 (Version 1)
Quarter: 2021Q4

REPORT INFORMATION
  Report Type: Spontaneous
  Country: US (occurrence: US)
  Receive Date: 20211022
  Receipt Date: 20211022
  Transmission Date: 20220303
  Serious: Yes (Other)
  Sender: FDA-Public Use
  Company Number: US-DRREDDYS-LIT/USA/21/0142811

PATIENT
  Age: 18 Year

DRUGS (5)
  1. SIROLIMUS [Suspect]
     Active Substance: SIROLIMUS
     Indication: Autoimmune haemolytic anaemia
     Dosage: SIROLIMUS FOR FOUR DAYS
  2. DARATUMUMAB [Suspect]
     Active Substance: DARATUMUMAB
     Indication: Autoimmune haemolytic anaemia
     Dosage: DARATUMUMAB FOR FOUR DAYS, 3 NUMBER OF DOSES AT 16 MG/KG I.V
     Route: 042
  3. ECULIZUMAB [Suspect]
     Active Substance: ECULIZUMAB
     Indication: Autoimmune haemolytic anaemia
     Dosage: ECULIZUMAB FOR FOUR DAYS
  4. ACETAMINOPHEN [Concomitant]
     Active Substance: ACETAMINOPHEN
     Indication: Product used for unknown indication
  5. DIPHENHYDRAMINE [Concomitant]
     Active Substance: DIPHENHYDRAMINE
     Indication: Product used for unknown indication

REACTIONS (1)
  - Drug ineffective [Unknown]
